FAERS Safety Report 17658888 (Version 1)
Quarter: 2020Q2

REPORT INFORMATION
  Report Type: Spontaneous
  Country: ES (occurrence: ES)
  Receive Date: 20200413
  Receipt Date: 20200413
  Transmission Date: 20200713
  Serious: Yes (Life-Threatening, Hospitalization)
  Sender: FDA-Public Use
  Company Number: ES-ASTRAZENECA-2020SE49124

PATIENT
  Age: 54 Year
  Sex: Female

DRUGS (8)
  1. CLOTIAPINA (678A) [Interacting]
     Active Substance: CLOTHIAPINE
     Indication: SUICIDE ATTEMPT
     Dosage: 240.0MG ONCE/SINGLE ADMINISTRATION
     Route: 048
     Dates: start: 20200303, end: 20200303
  2. CLONAZEPAM (635A) [Interacting]
     Active Substance: CLONAZEPAM
     Indication: SUICIDE ATTEMPT
     Dosage: 48.0MG ONCE/SINGLE ADMINISTRATION
     Route: 048
     Dates: start: 20200303, end: 20200303
  3. GABAPENTINA [Interacting]
     Active Substance: GABAPENTIN
     Indication: SUICIDE ATTEMPT
     Dosage: 4050.0MG ONCE/SINGLE ADMINISTRATION
     Route: 048
     Dates: start: 20200303, end: 20200303
  4. QUETIAPINA [Suspect]
     Active Substance: QUETIAPINE
     Indication: SUICIDE ATTEMPT
     Dosage: 7200.0MG ONCE/SINGLE ADMINISTRATION
     Route: 048
     Dates: start: 20200303, end: 20200303
  5. DIAZEPAM (730A) [Interacting]
     Active Substance: DIAZEPAM
     Indication: SUICIDE ATTEMPT
     Dosage: 60.0MG ONCE/SINGLE ADMINISTRATION
     Route: 048
     Dates: start: 20200303, end: 20200303
  6. ZONISAMIDA (7004A) [Interacting]
     Active Substance: ZONISAMIDE
     Indication: SUICIDE ATTEMPT
     Route: 048
     Dates: start: 20200303, end: 20200303
  7. PROPRANOLOL [Interacting]
     Active Substance: PROPRANOLOL HYDROCHLORIDE
     Indication: SUICIDE ATTEMPT
     Dosage: 720.0MG ONCE/SINGLE ADMINISTRATION
     Route: 048
     Dates: start: 20200303, end: 20200303
  8. BUPROPION HIDROCLORURO (1131CH) [Interacting]
     Active Substance: BUPROPION HYDROCHLORIDE
     Indication: SUICIDE ATTEMPT
     Dosage: 1800.0MG ONCE/SINGLE ADMINISTRATION
     Route: 048
     Dates: start: 20200303, end: 20200303

REACTIONS (1)
  - Coma [Recovered/Resolved]

NARRATIVE: CASE EVENT DATE: 20200303
